FAERS Safety Report 18362464 (Version 1)
Quarter: 2020Q4

REPORT INFORMATION
  Report Type: Spontaneous
  Country: US (occurrence: US)
  Receive Date: 20201008
  Receipt Date: 20201008
  Transmission Date: 20210114
  Serious: No
  Sender: FDA-Public Use
  Company Number: US-BAUSCH-BL-2020-027857

PATIENT
  Age: 61 Year
  Sex: Female

DRUGS (1)
  1. JUBLIA [Suspect]
     Active Substance: EFINACONAZOLE
     Indication: ONYCHOMYCOSIS
     Dosage: TWO OUT OF THE FOUR TIMES THAT SHE USED THE MEDICATION 2 TO 4 DROPS WERE APPLIED TO HER TOE
     Route: 061
     Dates: start: 20200920

REACTIONS (3)
  - Product delivery mechanism issue [Unknown]
  - Skin discolouration [Not Recovered/Not Resolved]
  - Nail discolouration [Not Recovered/Not Resolved]

NARRATIVE: CASE EVENT DATE: 20200921
